FAERS Safety Report 4310810-7 (Version None)
Quarter: 2004Q1

REPORT INFORMATION
  Report Type: 
  Country: None (occurrence: None)
  Receive Date: 20040301
  Receipt Date: 20031208
  Transmission Date: 20041129
  Serious: No
  Sender: FDA-Public Use
  Company Number: WAES 0312USA00965

PATIENT
  Age: 67 Year
  Sex: Female
  Weight: 83.4619 kg

DRUGS (5)
  1. ZETIA [Suspect]
     Indication: BLOOD CHOLESTEROL INCREASED
     Dosage: 10MG/DAILY/PO
     Dates: start: 20030916, end: 20031017
  2. ZETIA [Suspect]
     Indication: HYPERLIPIDAEMIA
     Dosage: 10MG/DAILY/PO
     Dates: start: 20030916, end: 20031017
  3. ACCUPRIL [Concomitant]
  4. PRILOSEC [Concomitant]
  5. METOPROLOL [Concomitant]

REACTIONS (2)
  - ALANINE AMINOTRANSFERASE INCREASED [None]
  - ASPARTATE AMINOTRANSFERASE INCREASED [None]
